FAERS Safety Report 19494531 (Version 1)
Quarter: 2021Q3

REPORT INFORMATION
  Report Type: Spontaneous
  Country: GB (occurrence: GB)
  Receive Date: 20210706
  Receipt Date: 20210706
  Transmission Date: 20211014
  Serious: Yes (Hospitalization, Other)
  Sender: FDA-Public Use
  Company Number: GB-AUROBINDO-AUR-APL-2020-031583

PATIENT
  Age: 73 Year
  Sex: Female

DRUGS (5)
  1. IMATINIB FILM?COATED TABLET [Suspect]
     Active Substance: IMATINIB MESYLATE
     Indication: GASTROINTESTINAL STROMAL TUMOUR
     Dosage: 400 MILLIGRAM, ONCE A DAY, INITIAL STARTING DOSE
     Route: 065
  2. IMATINIB FILM?COATED TABLET [Suspect]
     Active Substance: IMATINIB MESYLATE
     Dosage: 400 MILLIGRAM, ONCE A DAY (REINTRODUCTION AT FULL DOSE)
     Route: 048
  3. HYDROCORTISONE. [Suspect]
     Active Substance: HYDROCORTISONE
     Indication: COLITIS ULCERATIVE
     Dosage: UNK
     Route: 042
  4. IMATINIB FILM?COATED TABLET [Suspect]
     Active Substance: IMATINIB MESYLATE
     Dosage: 4000 MILLIGRAM, ONCE A DAY
     Route: 048
  5. IMATINIB FILM?COATED TABLET [Suspect]
     Active Substance: IMATINIB MESYLATE
     Indication: METASTASIS
     Dosage: 100 MILLIGRAM, ONCE A DAY (REINTRODUCED AT A LOW DOSE)
     Route: 065

REACTIONS (5)
  - Diarrhoea haemorrhagic [Recovered/Resolved]
  - Colitis ulcerative [Recovered/Resolved]
  - Abdominal pain [Recovered/Resolved]
  - Therapy non-responder [Unknown]
  - Colitis [Recovered/Resolved]
